FAERS Safety Report 19074266 (Version 1)
Quarter: 2021Q1

REPORT INFORMATION
  Report Type: Spontaneous
  Country: US (occurrence: US)
  Receive Date: 20210330
  Receipt Date: 20210330
  Transmission Date: 20210420
  Serious: No
  Sender: FDA-Public Use
  Company Number: US-SA-2021SA105270

PATIENT
  Age: 24 Year
  Sex: Female

DRUGS (2)
  1. FASENRA [Concomitant]
     Active Substance: BENRALIZUMAB
  2. DUPIXENT [Suspect]
     Active Substance: DUPILUMAB
     Indication: ASTHMA
     Dosage: 200 MG, QOW
     Route: 058
     Dates: start: 202007

REACTIONS (2)
  - Arthralgia [Unknown]
  - Headache [Unknown]
